FAERS Safety Report 16675104 (Version 1)
Quarter: 2019Q3

REPORT INFORMATION
  Report Type: Spontaneous
  Country: US (occurrence: US)
  Receive Date: 20190806
  Receipt Date: 20190806
  Transmission Date: 20191004
  Serious: Yes (Other)
  Sender: FDA-Public Use
  Company Number: US-BIOCODEX SA-201900883

PATIENT
  Age: 19 Year
  Sex: Male

DRUGS (2)
  1. DIACOMIT [Suspect]
     Active Substance: STIRIPENTOL
     Indication: PRODUCT USED FOR UNKNOWN INDICATION
     Dosage: ONE CAPSULES TWICE A DAY
     Route: 048
     Dates: start: 20190515
  2. DIACOMIT [Suspect]
     Active Substance: STIRIPENTOL
     Dosage: ONE CAPSULE IN THE MORNING AND TWO CAPSULES ON THE EVENING
     Route: 048
     Dates: start: 20190515

REACTIONS (1)
  - Cellulitis [Unknown]

NARRATIVE: CASE EVENT DATE: 20190705
